FAERS Safety Report 5577827-6 (Version None)
Quarter: 2007Q4

REPORT INFORMATION
  Report Type: 
  Country: None (occurrence: None)
  Receive Date: 20071130
  Receipt Date: 20070718
  Transmission Date: 20080405
  Serious: No
  Sender: FDA-Public Use
  Company Number: US200707004737

PATIENT
  Age: 66 Year
  Sex: Female

DRUGS (6)
  1. BYETTA [Suspect]
     Indication: TYPE 2 DIABETES MELLITUS
     Dosage: 5 UG, 5UG,2/D SUBCUTANEOUS
     Route: 058
     Dates: start: 20070201, end: 20070101
  2. BYETTA [Suspect]
     Indication: TYPE 2 DIABETES MELLITUS
     Dosage: 5 UG, 5UG,2/D SUBCUTANEOUS
     Route: 058
     Dates: start: 20070101
  3. GLYBURIDE [Concomitant]
  4. METFORMIN HCL [Concomitant]
  5. CILOSTAZOL [Concomitant]
  6. ANTIHYPERTENSIVES [Concomitant]

REACTIONS (5)
  - ALOPECIA [None]
  - DECREASED APPETITE [None]
  - DIARRHOEA [None]
  - INJECTION SITE LACERATION [None]
  - NAUSEA [None]
